FAERS Safety Report 4363971-8 (Version None)
Quarter: 2004Q2

REPORT INFORMATION
  Report Type: 
  Country: None (occurrence: None)
  Receive Date: 20040511
  Receipt Date: 20040423
  Transmission Date: 20050107
  Serious: Yes (Death, Hospitalization)
  Sender: FDA-Public Use
  Company Number: 205769

PATIENT
  Age: 68 Year
  Sex: Female
  Weight: 73 kg

DRUGS (8)
  1. HERCEPTIN [Suspect]
     Indication: BREAST CANCER METASTATIC
     Dosage: 4 MG/KG, 1/WEEK, INTRAVENOUS
     Route: 042
     Dates: start: 20040320, end: 20040320
  2. PACLITAXEL [Suspect]
     Indication: BREAST CANCER METASTATIC
     Dosage: 1/WEEK, INTRAVENOUS
     Route: 042
     Dates: start: 20040321, end: 20040321
  3. EPOETIN ALFA (EPOETIN ALFA) [Concomitant]
  4. FERROUS GLUCONATE (FERROUS GLUCONATE) [Concomitant]
  5. SERTRALINE HCL [Concomitant]
  6. AMISULPRIDE (AMISULPRIDE) [Concomitant]
  7. CHLORPROPAMIDE [Concomitant]
  8. PHENFORMIN HYDROCHLORIDE (PHENFORMIN HYDROCHLORIDE) [Concomitant]

REACTIONS (3)
  - CARDIAC FAILURE [None]
  - HYPERTENSION [None]
  - MYOCARDIAL INFARCTION [None]
